FAERS Safety Report 4542533-3 (Version None)
Quarter: 2004Q4

REPORT INFORMATION
  Report Type: 
  Country: None (occurrence: None)
  Receive Date: 20041229
  Receipt Date: 20041201
  Transmission Date: 20050328
  Serious: Yes (Hospitalization)
  Sender: FDA-Public Use
  Company Number: A-CH2004-08277

PATIENT
  Sex: Female

DRUGS (2)
  1. TRACLEER [Suspect]
     Indication: PULMONARY HYPERTENSION
     Dosage: ORAL
     Route: 048
  2. PREVISCAN (FLUINDIONE) [Concomitant]

REACTIONS (6)
  - HYPOXIA [None]
  - IMMUNE SYSTEM DISORDER [None]
  - INFECTION [None]
  - LUNG DISORDER [None]
  - OEDEMA [None]
  - TUBERCULOSIS [None]
